FAERS Safety Report 15354129 (Version 1)
Quarter: 2018Q3

REPORT INFORMATION
  Report Type: Spontaneous
  Country: PL (occurrence: PL)
  Receive Date: 20180906
  Receipt Date: 20180906
  Transmission Date: 20181010
  Serious: Yes (Other)
  Sender: FDA-Public Use
  Company Number: PHHY2018PL086397

PATIENT
  Age: 27 Year
  Sex: Male

DRUGS (7)
  1. TISERCIN [Concomitant]
     Indication: SCHIZOPHRENIA
  2. RELANIUM [Suspect]
     Active Substance: DIAZEPAM
     Indication: SCHIZOPHRENIA
     Route: 065
  3. OLANZAPINE. [Suspect]
     Active Substance: OLANZAPINE
     Indication: SCHIZOPHRENIA
     Route: 065
  4. PRIDINOL [Suspect]
     Active Substance: PRIDINOL
     Indication: SCHIZOPHRENIA
     Route: 065
  5. PERAZINE [Concomitant]
     Active Substance: PERAZINE
     Indication: SCHIZOPHRENIA
     Route: 065
  6. CLOPIXOL [Suspect]
     Active Substance: ZUCLOPENTHIXOL
     Indication: SCHIZOPHRENIA
     Route: 065
  7. HYDROXYZINE [Concomitant]
     Active Substance: HYDROXYZINE HYDROCHLORIDE
     Indication: SCHIZOPHRENIA
     Route: 065

REACTIONS (1)
  - Toxicity to various agents [Unknown]
